FAERS Safety Report 11369107 (Version 1)
Quarter: 2015Q3

REPORT INFORMATION
  Report Type: Spontaneous
  Country: IN (occurrence: IN)
  Receive Date: 20150812
  Receipt Date: 20150812
  Transmission Date: 20151125
  Serious: Yes (Hospitalization)
  Sender: FDA-Public Use
  Company Number: IN-ASTRAZENECA-2015SE75810

PATIENT
  Age: 48 Year
  Sex: Female

DRUGS (8)
  1. COLISTIN [Suspect]
     Active Substance: COLISTIN
     Indication: BACTERIAL INFECTION
     Dosage: 1 MILLION UNITS\ ONCE DAILY
     Route: 065
  2. COLISTIN [Suspect]
     Active Substance: COLISTIN
     Indication: BACTERIAL INFECTION
     Dosage: 2 MILLION UNITS\ ONCE DAILY
     Route: 065
  3. MEROPENEM. [Suspect]
     Active Substance: MEROPENEM
     Indication: BACTERIAL INFECTION
     Route: 042
  4. ONDANSETRON [Concomitant]
     Active Substance: ONDANSETRON
  5. AMLODIPINE [Concomitant]
     Active Substance: AMLODIPINE BESYLATE
  6. PANTOPRAZOLE [Concomitant]
     Active Substance: PANTOPRAZOLE SODIUM
  7. COLISTIN [Suspect]
     Active Substance: COLISTIN
     Indication: BACTERIAL INFECTION
     Dosage: 6 MILLION UNITS LOADING DOSE
     Route: 065
  8. PARACETAMOL [Concomitant]
     Active Substance: ACETAMINOPHEN

REACTIONS (3)
  - Muscular weakness [Recovering/Resolving]
  - Neurotoxicity [Recovering/Resolving]
  - Paraesthesia [Recovering/Resolving]
